FAERS Safety Report 16146179 (Version 1)
Quarter: 2019Q2

REPORT INFORMATION
  Report Type: Spontaneous
  Country: IL (occurrence: IL)
  Receive Date: 20190402
  Receipt Date: 20190402
  Transmission Date: 20190711
  Serious: Yes (Death, Hospitalization, Other)
  Sender: FDA-Public Use
  Company Number: IL-ACTELION-A-CH2018-176429

PATIENT
  Age: 54 Year
  Sex: Male

DRUGS (19)
  1. NEOBLOC [Concomitant]
     Route: 065
  2. JANUVIA [Concomitant]
     Active Substance: SITAGLIPTIN PHOSPHATE
     Route: 065
  3. SPIRONOLACTON [Concomitant]
     Active Substance: SPIRONOLACTONE
     Route: 065
  4. LITORVA [Concomitant]
     Active Substance: ATORVASTATIN CALCIUM
     Route: 065
  5. ELIQUIS [Concomitant]
     Active Substance: APIXABAN
     Route: 065
  6. LOSEC [Concomitant]
     Active Substance: OMEPRAZOLE
     Route: 065
  7. MICROPIRIN [Concomitant]
     Active Substance: ASPIRIN
     Route: 065
  8. GLUCOMIN [Concomitant]
     Active Substance: METFORMIN HYDROCHLORIDE
     Route: 065
  9. OPSUMIT [Suspect]
     Active Substance: MACITENTAN
     Indication: PULMONARY VENO-OCCLUSIVE DISEASE
     Dosage: 10 MG, QD
     Route: 048
     Dates: start: 20171106, end: 20190317
  10. ALPHA D3 [Concomitant]
     Active Substance: ALFACALCIDOL
     Route: 065
  11. UPTRAVI [Suspect]
     Active Substance: SELEXIPAG
     Dosage: 200 MCG, BID
     Route: 048
     Dates: start: 20180725, end: 20180814
  12. ELTROXIN [Concomitant]
     Active Substance: LEVOTHYROXINE
     Route: 065
  13. PLAVIX [Concomitant]
     Active Substance: CLOPIDOGREL BISULFATE
     Route: 065
  14. FOLIC ACID. [Concomitant]
     Active Substance: FOLIC ACID
     Route: 065
  15. UPTRAVI [Suspect]
     Active Substance: SELEXIPAG
     Dosage: 600 MCG, QD
     Route: 048
     Dates: start: 201807
  16. SILDENAFIL CITRATE. [Concomitant]
     Active Substance: SILDENAFIL CITRATE
     Route: 065
  17. FUROSEMIDE. [Concomitant]
     Active Substance: FUROSEMIDE
     Route: 065
  18. UPTRAVI [Suspect]
     Active Substance: SELEXIPAG
     Indication: PULMONARY VENO-OCCLUSIVE DISEASE
     Dosage: 200 MCG, BID
     Route: 048
     Dates: start: 20180626
  19. TRITACE [Concomitant]
     Active Substance: RAMIPRIL
     Route: 065

REACTIONS (7)
  - Pulmonary hypertension [Unknown]
  - Pain in extremity [Recovering/Resolving]
  - Death [Fatal]
  - Diarrhoea [Recovered/Resolved]
  - Headache [Recovering/Resolving]
  - Oedema peripheral [Unknown]
  - Rales [Unknown]

NARRATIVE: CASE EVENT DATE: 20180724
